FAERS Safety Report 7338281-7 (Version None)
Quarter: 2011Q1

REPORT INFORMATION
  Report Type: 
  Country: None (occurrence: None)
  Receive Date: 20110303
  Receipt Date: 20110303
  Transmission Date: 20110831
  Serious: Yes (Life-Threatening, Hospitalization, Other)
  Sender: FDA-Public Use
  Company Number: None

PATIENT
  Age: 18 Year
  Sex: Male
  Weight: 81.6475 kg

DRUGS (3)
  1. RISPERDAL [Suspect]
     Indication: ANXIETY
     Dosage: 1 MG TWICE PER DAY SL
     Route: 060
     Dates: start: 20110119, end: 20110202
  2. RISPERDAL [Suspect]
     Indication: DEPRESSION
     Dosage: 1 MG TWICE PER DAY SL
     Route: 060
     Dates: start: 20110119, end: 20110202
  3. CELEXA [Concomitant]

REACTIONS (14)
  - INSOMNIA [None]
  - FLAT AFFECT [None]
  - DYSKINESIA [None]
  - PARKINSONISM [None]
  - SLEEP APNOEA SYNDROME [None]
  - HYPERHIDROSIS [None]
  - AMNESIA [None]
  - HEART RATE INCREASED [None]
  - DYSARTHRIA [None]
  - COGNITIVE DISORDER [None]
  - FEELING ABNORMAL [None]
  - APATHY [None]
  - ALTERED STATE OF CONSCIOUSNESS [None]
  - GYNAECOMASTIA [None]
